FAERS Safety Report 24306429 (Version 2)
Quarter: 2025Q2

REPORT INFORMATION
  Report Type: Report from Study
  Country: CO (occurrence: CO)
  Receive Date: 20240911
  Receipt Date: 20250521
  Transmission Date: 20250717
  Serious: Yes (Other)
  Sender: GLAXOSMITHKLINE
  Company Number: CO-GLAXOSMITHKLINE-CO2024AMR089254

PATIENT

DRUGS (1)
  1. MEPOLIZUMAB [Suspect]
     Active Substance: MEPOLIZUMAB
     Indication: Asthma
     Dosage: 100 MG, MO
     Dates: start: 20240112, end: 20241025

REACTIONS (5)
  - Cataract [Recovering/Resolving]
  - Asphyxia [Not Recovered/Not Resolved]
  - Respiratory tract congestion [Unknown]
  - Weight decreased [Unknown]
  - Productive cough [Unknown]

NARRATIVE: CASE EVENT DATE: 20250501
